FAERS Safety Report 8771896 (Version 1)
Quarter: 2012Q4

REPORT INFORMATION
  Report Type: 
  Country: JP (occurrence: JP)
  Receive Date: 20120905
  Receipt Date: 20120905
  Transmission Date: 20130627
  Serious: Yes (Hospitalization)
  Sender: FDA-Public Use
  Company Number: JP-ROCHE-1114707

PATIENT
  Age: 71 Year
  Sex: Female
  Weight: 41 kg

DRUGS (8)
  1. XELODA [Suspect]
     Indication: COLON CANCER RECURRENT
     Dosage: It is one administering weekly holiday medicine for two weeks.
     Route: 048
     Dates: start: 20120507, end: 20120802
  2. AVASTIN [Suspect]
     Indication: COLON CANCER RECURRENT
     Route: 041
     Dates: start: 20120507, end: 20120730
  3. ELPLAT [Concomitant]
     Indication: COLON CANCER RECURRENT
     Route: 041
     Dates: start: 20120507, end: 20120730
  4. ALOSENN [Concomitant]
     Route: 048
     Dates: end: 20120802
  5. MAGMITT [Concomitant]
     Route: 048
     Dates: end: 20120802
  6. LASIX [Concomitant]
     Route: 048
     Dates: end: 20120802
  7. WARFARIN [Concomitant]
     Route: 048
     Dates: end: 20120802
  8. ARGAMATE [Concomitant]
     Route: 048
     Dates: end: 20120802

REACTIONS (1)
  - Gastrointestinal perforation [Not Recovered/Not Resolved]
